FAERS Safety Report 17808339 (Version 1)
Quarter: 2020Q2

REPORT INFORMATION
  Report Type: Spontaneous
  Country: SE (occurrence: SE)
  Receive Date: 20200520
  Receipt Date: 20200520
  Transmission Date: 20200714
  Serious: Yes (Life-Threatening, Hospitalization)
  Sender: FDA-Public Use
  Company Number: SE-ACCORD-182399

PATIENT
  Age: 42 Year
  Sex: Female

DRUGS (4)
  1. OXALIPLATIN ACCORD [Suspect]
     Active Substance: OXALIPLATIN
     Indication: METASTASES TO LIVER
     Dosage: STRENGTH: 5 MG/ML
  2. CAPECITABINE. [Concomitant]
     Active Substance: CAPECITABINE
  3. OXALIPLATIN ACCORD [Suspect]
     Active Substance: OXALIPLATIN
     Indication: COLON CANCER METASTATIC
     Dosage: STRENGTH: 5 MG / ML, 5 MG / ML 190 MG, RECEIVES ABOUT 10-15 ML. TREATMENT NO. 2
     Route: 042
     Dates: start: 20200415, end: 20200415
  4. OXALIPLATIN ACCORD [Suspect]
     Active Substance: OXALIPLATIN
     Indication: PALLIATIVE CARE
     Dosage: STRENGTH: 5 MG/ML
     Route: 042

REACTIONS (9)
  - Paraesthesia [Recovered/Resolved]
  - Paraesthesia oral [Recovered/Resolved]
  - Off label use [Unknown]
  - Malaise [Recovered/Resolved]
  - Vomiting [Recovered/Resolved]
  - Abdominal pain [Recovered/Resolved]
  - Loss of consciousness [Recovered/Resolved]
  - Hypotension [Recovered/Resolved]
  - Pulse abnormal [Recovered/Resolved]

NARRATIVE: CASE EVENT DATE: 20200415
